FAERS Safety Report 10285901 (Version 2)
Quarter: 2014Q3

REPORT INFORMATION
  Report Type: Report from Study
  Country: US (occurrence: None)
  Receive Date: 20140703
  Receipt Date: 20140912
  Transmission Date: 20150326
  Serious: Yes (Other)
  Sender: FDA-Public Use
  Company Number: UNT-2014-002684

PATIENT
  Age: 71 Year
  Sex: Female

DRUGS (23)
  1. TRACLEER?/01587701/ (BOSENTAN) [Concomitant]
  2. VITAMIN B12?/00056201/ (CYANOCOBALAMIN) [Concomitant]
  3. MAGNESIUM OXIDE (MAGNESIUM OXIDE) [Concomitant]
     Active Substance: MAGNESIUM OXIDE
  4. POTASSIUM CHLORIDE (POTASSIUM CHLORIDE) [Concomitant]
     Active Substance: POTASSIUM CHLORIDE
  5. ZAROXOLYN (METOLAZONE) [Concomitant]
  6. TREPOSTINIL SODIUM (SO/IV) (TREPROSTINIL SODIUM) INJECTION [Suspect]
     Active Substance: TREPROSTINIL SODIUM
     Indication: PULMONARY ARTERIAL HYPERTENSION
     Route: 041
  7. OCEAN NASAL (SODIUM CHLORIDE) [Concomitant]
  8. OXYGEN (OXYGEN) [Concomitant]
     Active Substance: OXYGEN
  9. GABAPENTIN (GABAPETIN) [Concomitant]
  10. JUICE PLUS (AMYLASE, ASCORBIC ACID, CELLULASE, FOLIC ACID, LIPASE, PROTEASE) [Concomitant]
  11. IRON (IRON) [Concomitant]
     Active Substance: IRON
  12. OMEGA-3  FATTY ACIDS (OMEGA-3 FATTY ACIDS) [Concomitant]
  13. IMODIUM [Concomitant]
     Active Substance: LOPERAMIDE HYDROCHLORIDE
  14. COUMADIN?/00014802/ (WARFARIN SODIUM)   GABAPENTIN (GABAPE [Concomitant]
  15. VENTOLIN?/00139501/ (SALBUTAMOL) [Concomitant]
  16. COENZYME Q10 (UBIDECARENONE) [Concomitant]
  17. TORSEMIDE (TORASEMIDE) [Concomitant]
  18. ADCIRCA [Concomitant]
     Active Substance: TADALAFIL
  19. LOMOTIL?/00034001/ (ATROPINE SULFATE, DIPHENOXYLATE HYDROCHLORIDE) [Concomitant]
  20. PRILOSEC?/00661201/ (OMEPRAZOLE) [Concomitant]
  21. PROBIOTICS?/07325001/ (BIFIDOBACTERIUM LONGUM, LACTOBACILLUS ACIDOPHILUS, LACTOBACILLUS RHAMNOSUS) [Concomitant]
  22. VITAMIN D?/00107901/ (ERGOCALCIFEROL) [Concomitant]
  23. COMBIVENT (IPRATROPIUM BROMIDE, SALBUTAMOL SULFATE) [Concomitant]

REACTIONS (4)
  - Hypokalaemia [None]
  - Gastrointestinal haemorrhage [None]
  - Hypovolaemia [None]
  - Gastritis [None]

NARRATIVE: CASE EVENT DATE: 20140501
